FAERS Safety Report 6471405-2 (Version None)
Quarter: 2009Q4

REPORT INFORMATION
  Report Type: 
  Country: None (occurrence: None)
  Receive Date: 20091203
  Receipt Date: 20081215
  Transmission Date: 20100525
  Serious: Yes (Hospitalization, Other)
  Sender: FDA-Public Use
  Company Number: CA-ELI_LILLY_AND_COMPANY-CA200802000170

PATIENT
  Age: 61 Year
  Sex: Female

DRUGS (8)
  1. FORTEO [Suspect]
     Indication: OSTEOPOROSIS
     Dosage: 20 UG, DAILY (1/D)
     Route: 058
     Dates: start: 20070731, end: 20080303
  2. FORTEO [Suspect]
     Dosage: 20 UG, DAILY (1/D)
     Dates: start: 20080501
  3. PANTOLOC                           /01263201/ [Concomitant]
  4. ATACAND [Concomitant]
  5. COUMADIN [Concomitant]
  6. APO-HYDROXYQUINE [Concomitant]
  7. PREDNISONE [Concomitant]
  8. CALCIUM WITH VITAMIN D /00944201/ [Concomitant]

REACTIONS (7)
  - INCISION SITE INFECTION [None]
  - INCISIONAL HERNIA [None]
  - INFECTION [None]
  - INFLAMMATION [None]
  - PAIN IN EXTREMITY [None]
  - PERIPHERAL VASCULAR DISORDER [None]
  - TOE AMPUTATION [None]
